FAERS Safety Report 23738340 (Version 1)
Quarter: 2024Q2

REPORT INFORMATION
  Report Type: Spontaneous
  Country: US (occurrence: US)
  Receive Date: 20240412
  Receipt Date: 20240412
  Transmission Date: 20240716
  Serious: Yes (Other)
  Sender: FDA-Public Use
  Company Number: US-BRISTOL-MYERS SQUIBB COMPANY-2024-057632

PATIENT
  Age: 64 Year
  Sex: Male

DRUGS (1)
  1. ELIQUIS [Suspect]
     Active Substance: APIXABAN
     Indication: Product used for unknown indication

REACTIONS (11)
  - Cardiac failure congestive [Unknown]
  - Bone disorder [Unknown]
  - Diabetes mellitus inadequate control [Unknown]
  - Hyperlipidaemia [Unknown]
  - Hypertension [Unknown]
  - Presbyopia [Unknown]
  - Depression [Unknown]
  - Anaemia [Unknown]
  - Renal failure [Unknown]
  - Retinopathy [Unknown]
  - Cardiac disorder [Unknown]
